FAERS Safety Report 13345707 (Version 1)
Quarter: 2017Q1

REPORT INFORMATION
  Report Type: Spontaneous
  Country: US (occurrence: US)
  Receive Date: 20170317
  Receipt Date: 20170317
  Transmission Date: 20170428
  Serious: No
  Sender: FDA-Public Use
  Company Number: US-TAKEDA-2017MPI002020

PATIENT
  Sex: Male

DRUGS (2)
  1. NORTHERA [Concomitant]
     Active Substance: DROXIDOPA
  2. VELCADE [Suspect]
     Active Substance: BORTEZOMIB
     Indication: PRODUCT USED FOR UNKNOWN INDICATION
     Dosage: UNK
     Route: 065

REACTIONS (4)
  - Blood pressure fluctuation [Unknown]
  - Neuropathy peripheral [Unknown]
  - Drug tolerance decreased [Unknown]
  - Syncope [Unknown]
